FAERS Safety Report 11189301 (Version 2)
Quarter: 2015Q3

REPORT INFORMATION
  Report Type: Spontaneous
  Country: US (occurrence: US)
  Receive Date: 20150615
  Receipt Date: 20150707
  Transmission Date: 20151125
  Serious: Yes (Other)
  Sender: FDA-Public Use
  Company Number: US-BAYER-2015-319750

PATIENT
  Sex: Female

DRUGS (1)
  1. SKYLA [Suspect]
     Active Substance: LEVONORGESTREL
     Indication: CONTRACEPTION
     Dosage: 14 MCG/24HR, CONT
     Route: 015
     Dates: start: 20150417, end: 20150417

REACTIONS (6)
  - Vomiting [None]
  - Heart rate decreased [None]
  - Device difficult to use [None]
  - Complication of device insertion [None]
  - Blood pressure decreased [None]
  - Oxygen saturation decreased [None]

NARRATIVE: CASE EVENT DATE: 20150417
